FAERS Safety Report 14749979 (Version 1)
Quarter: 2018Q2

REPORT INFORMATION
  Report Type: Report from Study
  Country: None (occurrence: BE)
  Receive Date: 20180412
  Receipt Date: 20180412
  Transmission Date: 20180711
  Serious: Yes (Hospitalization)
  Sender: FDA-Public Use
  Company Number: BE-ABBVIE-18K-013-2314661-00

PATIENT
  Sex: Female

DRUGS (7)
  1. MARCOUMAR [Concomitant]
     Active Substance: PHENPROCOUMON
     Indication: COAGULOPATHY
     Dosage: 0.5 TABLET ON MONDAY AND FRIDAY. 0.25 TABLET, 0.25 TABLET TUE, WED THURS, SAT, SUNDAY
  2. DUODOPA [Suspect]
     Active Substance: CARBIDOPA\LEVODOPA
     Indication: PARKINSON^S DISEASE
     Dosage: AM: 4ML; CD:3.0ML/H FOR 16HRS; ED: 1.5ML
     Route: 050
     Dates: start: 20160829
  3. STALEVO [Concomitant]
     Active Substance: CARBIDOPA\ENTACAPONE\LEVODOPA
     Dosage: FORM STRENGTH: 200MG/50MG/200MG; 4 TIMES A DAY AS PD EMERGENCY MEDICATION
     Dates: start: 2016
  4. STALEVO [Concomitant]
     Active Substance: CARBIDOPA\ENTACAPONE\LEVODOPA
     Indication: PARKINSON^S DISEASE
     Dosage: FORM STRENGTH: 200MG/50MG/200MG;
     Route: 048
  5. ZALDIAR 37.5 [Concomitant]
     Indication: PRODUCT USED FOR UNKNOWN INDICATION
     Dosage: TRAMADOL 37.5 MG/PARACETAMOL 325 MG
  6. BIOFENAC (ACECLOFENAC) [Concomitant]
     Active Substance: ACECLOFENAC
     Indication: PRODUCT USED FOR UNKNOWN INDICATION
  7. PANTOMED (PANTOPRAZOLE SODIUM SESQUIHYDRATE) [Concomitant]
     Active Substance: PANTOPRAZOLE SODIUM
     Indication: PRODUCT USED FOR UNKNOWN INDICATION

REACTIONS (2)
  - Musculoskeletal disorder [Unknown]
  - Device deployment issue [Unknown]
